FAERS Safety Report 7837692 (Version 2)
Quarter: 2013Q2

REPORT INFORMATION
  Report Type: Spontaneous
  Country: US (occurrence: US)
  Receive Date: 20110302
  Receipt Date: 20130621
  Transmission Date: 20140414
  Serious: Yes (Hospitalization, Other)
  Sender: FDA-Public Use
  Company Number: US-PFIZER INC-2009305731

PATIENT
  Age: 45 Year
  Sex: Male

DRUGS (5)
  1. DILANTIN [Suspect]
     Dosage: 200 MG, 2X/DAY
     Route: 042
     Dates: start: 20031123, end: 20031201
  2. DILANTIN [Suspect]
     Dosage: 300 MG, 3X/DAY
     Route: 048
     Dates: start: 20031202, end: 20031206
  3. NIMODIPINE [Concomitant]
     Dosage: 60 MG (30MG TWO CAPSULES) EVERY 4 HRS
     Route: 048
     Dates: start: 20031205
  4. PROTONIX [Concomitant]
     Dosage: 40 MG, 1X/DAY
     Route: 048
     Dates: start: 20031205
  5. GLYBURIDE [Concomitant]
     Dosage: 2.5 MG, 1X/DAY
     Route: 048
     Dates: start: 20031205

REACTIONS (1)
  - Stevens-Johnson syndrome [Unknown]
